FAERS Safety Report 25121169 (Version 1)
Quarter: 2025Q1

REPORT INFORMATION
  Report Type: Spontaneous
  Country: US (occurrence: US)
  Receive Date: 20250326
  Receipt Date: 20250326
  Transmission Date: 20250408
  Serious: No
  Sender: ZYDUS PHARM
  Company Number: US-CADILA HEALTHCARE LIMITED-US-ZYDUS-118966

PATIENT

DRUGS (1)
  1. ETHINYL ESTRADIOL\NORELGESTROMIN [Suspect]
     Active Substance: ETHINYL ESTRADIOL\NORELGESTROMIN
     Indication: Contraception
     Route: 062
     Dates: start: 20250116

REACTIONS (5)
  - Product adhesion issue [Recovered/Resolved]
  - Application site erythema [Unknown]
  - Application site pruritus [Unknown]
  - Incorrect product administration duration [Recovered/Resolved]
  - Application site pain [Unknown]

NARRATIVE: CASE EVENT DATE: 20250101
